FAERS Safety Report 9384181 (Version 1)
Quarter: 2013Q3

REPORT INFORMATION
  Report Type: Spontaneous
  Country: US (occurrence: US)
  Receive Date: 20130705
  Receipt Date: 20130705
  Transmission Date: 20140515
  Serious: Yes (Hospitalization, Other)
  Sender: FDA-Public Use
  Company Number: US-ASTRAZENECA-2013SE49619

PATIENT
  Age: 70 Year
  Sex: Male
  Weight: 77.1 kg

DRUGS (1)
  1. NEXIUM [Suspect]
     Indication: REFLUX LARYNGITIS
     Route: 048

REACTIONS (4)
  - Transient ischaemic attack [Unknown]
  - Oxygen saturation decreased [Unknown]
  - Therapeutic response unexpected [Unknown]
  - Intentional drug misuse [Unknown]
